FAERS Safety Report 5721765-2 (Version None)
Quarter: 2008Q2

REPORT INFORMATION
  Report Type: 
  Country: None (occurrence: None)
  Receive Date: 20080429
  Receipt Date: 20070402
  Transmission Date: 20081010
  Serious: Yes (Other)
  Sender: FDA-Public Use
  Company Number: US-ASTRAZENECA-2007UW06554

PATIENT
  Age: 38 Year
  Sex: Female
  Weight: 90.7 kg

DRUGS (1)
  1. NEXIUM [Suspect]
     Indication: REFLUX OESOPHAGITIS
     Route: 048

REACTIONS (4)
  - OEDEMA PERIPHERAL [None]
  - RASH [None]
  - SWELLING FACE [None]
  - URTICARIA [None]
